FAERS Safety Report 9730075 (Version 3)
Quarter: 2014Q1

REPORT INFORMATION
  Report Type: Spontaneous
  Country: CA (occurrence: CA)
  Receive Date: 20131204
  Receipt Date: 20140117
  Transmission Date: 20141002
  Serious: Yes (Other)
  Sender: FDA-Public Use
  Company Number: CA-BAXTER-2013BAX047233

PATIENT
  Age: 80 Year
  Sex: Male

DRUGS (2)
  1. GAMMAGARD LIQUID -IMMUNE GLOBULIN INTRAVENOUS (HUMAN), [IGIV] 10% [Suspect]
     Indication: IMMUNE THROMBOCYTOPENIC PURPURA
     Route: 042
     Dates: start: 20130829, end: 20130829
  2. PREDNISONE [Concomitant]
     Indication: IMMUNE THROMBOCYTOPENIC PURPURA

REACTIONS (8)
  - Respiratory failure [Unknown]
  - Hypoxia [Recovering/Resolving]
  - Hypotension [Unknown]
  - Dyspnoea [Recovered/Resolved]
  - Tachycardia [Unknown]
  - Tremor [Unknown]
  - Chills [Recovered/Resolved]
  - Use of accessory respiratory muscles [Recovered/Resolved]
